FAERS Safety Report 9301774 (Version 1)
Quarter: 2013Q2

REPORT INFORMATION
  Report Type: Report from Study
  Country: DE (occurrence: DE)
  Receive Date: 20130521
  Receipt Date: 20130521
  Transmission Date: 20140414
  Serious: Yes (Hospitalization)
  Sender: FDA-Public Use
  Company Number: DE-INCYTE CORPORATION-2013IN000963

PATIENT
  Sex: Male
  Weight: 60 kg

DRUGS (3)
  1. INCB018424 [Suspect]
     Indication: MYELOFIBROSIS
     Dosage: 20 MG, BID (2 DF PER DAY)
     Route: 048
     Dates: start: 20130112
  2. BISOPROLOL [Concomitant]
     Dosage: UNK
     Dates: start: 20100401
  3. SIMVASTATIN [Concomitant]
     Dosage: UNK
     Dates: start: 20100401

REACTIONS (1)
  - Pulmonary embolism [Recovering/Resolving]
